FAERS Safety Report 24601727 (Version 1)
Quarter: 2024Q4

REPORT INFORMATION
  Report Type: Spontaneous
  Country: US (occurrence: US)
  Receive Date: 20241111
  Receipt Date: 20241111
  Transmission Date: 20250115
  Serious: No
  Sender: PADAGIS
  Company Number: US-PADAGIS-2024PAD01749

PATIENT

DRUGS (1)
  1. NYSTATIN\TRIAMCINOLONE ACETONIDE [Suspect]
     Active Substance: NYSTATIN\TRIAMCINOLONE ACETONIDE
     Indication: Product used for unknown indication
     Dosage: UNK UNK, QD
     Route: 065

REACTIONS (8)
  - Oral discomfort [Unknown]
  - Burning sensation [Unknown]
  - Throat irritation [Unknown]
  - Dyspnoea [Unknown]
  - Malaise [Unknown]
  - Screaming [Unknown]
  - Application site pain [Unknown]
  - Product use issue [Unknown]
